FAERS Safety Report 9543752 (Version 2)
Quarter: 2014Q1

REPORT INFORMATION
  Report Type: Spontaneous
  Country: US (occurrence: None)
  Receive Date: 20130524
  Receipt Date: 20130724
  Transmission Date: 20141002
  Serious: No
  Sender: FDA-Public Use
  Company Number: PHEH2013US002577

PATIENT
  Age: 66 Year
  Sex: Female
  Weight: 64 kg

DRUGS (16)
  1. GILENYA (FINGOLIMOD) CAPSULE, 0.5MG [Suspect]
     Indication: RELAPSING-REMITTING MULTIPLE SCLEROSIS
     Route: 048
     Dates: start: 20130103, end: 20130131
  2. ARICEPT (DONEPEZIL HYDROCHLORIDE) [Concomitant]
  3. COLACE [Concomitant]
  4. DIAZEPAM (DIAZEPAM) [Concomitant]
  5. FAMODITINE (FAMOTIDINE) [Concomitant]
  6. TOPROL XL (METOPROLOL SUCCINATE) (100 MILLIGRAM) (METOPROLOL SUCCINATE) [Concomitant]
  7. NAMENDA (MEMANTINE HYDROCHLORIDE) [Concomitant]
  8. NORVASC (AMLODIPINE BESILATE) [Concomitant]
  9. NUCYNTA (TAPENTADOL HYDROCHLORIDE) [Concomitant]
  10. PREMARIN (ESTROGENS CONJUGATED) [Concomitant]
  11. PRISTIQ (DESVENLAFAXINE SUCCINATE) [Concomitant]
  12. PROMETHAZIN (PROMETHAZINE HYDROCHLORIDE) [Concomitant]
  13. REMERON (MIRTAZAPINE) [Concomitant]
  14. TIZANIDINE (TIZANIDINE) [Concomitant]
  15. SYNTHROID (LEVOTHYROXINE SODIUM) [Concomitant]
  16. AMOXICILLIN [Concomitant]

REACTIONS (3)
  - Joint swelling [None]
  - Oedema peripheral [None]
  - Migraine [None]
